FAERS Safety Report 16011996 (Version 1)
Quarter: 2019Q1

REPORT INFORMATION
  Report Type: Spontaneous
  Country: US (occurrence: US)
  Receive Date: 20190227
  Receipt Date: 20190227
  Transmission Date: 20190418
  Serious: No
  Sender: FDA-Public Use
  Company Number: US-TEVA-2019-US-1006658

PATIENT
  Age: 66 Year
  Sex: Male

DRUGS (1)
  1. TESTOSTERONE GEL ACTAVIS [Suspect]
     Active Substance: TESTOSTERONE
     Indication: BLOOD TESTOSTERONE DECREASED
     Route: 065
     Dates: start: 201801

REACTIONS (3)
  - Fatigue [Unknown]
  - Asthenia [Unknown]
  - Product storage error [Unknown]

NARRATIVE: CASE EVENT DATE: 201812
